FAERS Safety Report 8766854 (Version 1)
Quarter: 2012Q4

REPORT INFORMATION
  Report Type: 
  Country: JP (occurrence: JP)
  Receive Date: 20120904
  Receipt Date: 20120904
  Transmission Date: 20130627
  Serious: Yes (Hospitalization)
  Sender: FDA-Public Use
  Company Number: JP-AMGEN-JPNCT2012055393

PATIENT
  Age: 80 Year
  Sex: Male
  Weight: 61 kg

DRUGS (8)
  1. DARBEPOETIN ALFA [Suspect]
     Indication: NEPHROGENIC ANAEMIA
     Dosage: 30 mug, qd
     Route: 058
     Dates: start: 20110401, end: 20110401
  2. DARBEPOETIN ALFA [Suspect]
     Dosage: 30 mug, q2wk
     Route: 058
     Dates: start: 20110423, end: 20110630
  3. PREDONINE [Suspect]
     Indication: NEPHROTIC SYNDROME
     Dosage: 5 mg, qd
     Route: 048
     Dates: start: 19990809
  4. WARFARIN [Concomitant]
     Dosage: Uncertainty
     Route: 048
  5. BLOPRESS [Concomitant]
     Dosage: Uncertainty
     Route: 048
  6. AMLODIN [Concomitant]
     Dosage: Uncertainty
     Route: 048
  7. HERBESSER R [Concomitant]
     Dosage: Uncertainty
     Route: 048
  8. HARNAL [Concomitant]
     Dosage: Uncertainty
     Route: 048

REACTIONS (3)
  - Gastric ulcer [Recovered/Resolved]
  - Pancreatitis acute [Recovered/Resolved]
  - Cholecystitis acute [Recovered/Resolved]
